FAERS Safety Report 24921620 (Version 1)
Quarter: 2025Q1

REPORT INFORMATION
  Report Type: Report from Study
  Country: US (occurrence: US)
  Receive Date: 20250204
  Receipt Date: 20250204
  Transmission Date: 20250409
  Serious: Yes (Hospitalization)
  Sender: TAKEDA
  Company Number: US-TAKEDA-2025TUS011399

PATIENT
  Sex: Female

DRUGS (12)
  1. PONATINIB [Suspect]
     Active Substance: PONATINIB
     Indication: Acute lymphocytic leukaemia
     Dosage: 30 MILLIGRAM, QD
  2. OXYCODONE HYDROCHLORIDE [Concomitant]
     Active Substance: OXYCODONE HYDROCHLORIDE
  3. DEXTROSE [Concomitant]
     Active Substance: DEXTROSE MONOHYDRATE
  4. Fluconazone [Concomitant]
  5. HUMULIN 70/30 [Concomitant]
     Active Substance: INSULIN HUMAN
  6. PROCHLORPERAZINE MALEATE [Concomitant]
     Active Substance: PROCHLORPERAZINE MALEATE
  7. ACYCLOVIR [Concomitant]
     Active Substance: ACYCLOVIR
  8. MIRTAZAPINE [Concomitant]
     Active Substance: MIRTAZAPINE
  9. KEPPRA [Concomitant]
     Active Substance: LEVETIRACETAM
  10. MELATONIN [Concomitant]
     Active Substance: MELATONIN
  11. Ponaris [Concomitant]
  12. MAGNESIUM OXIDE [Concomitant]
     Active Substance: MAGNESIUM OXIDE

REACTIONS (3)
  - Medical device site infection [Unknown]
  - Headache [Unknown]
  - Pain [Unknown]
